FAERS Safety Report 4481150-0 (Version None)
Quarter: 2004Q4

REPORT INFORMATION
  Report Type: 
  Country: None (occurrence: None)
  Receive Date: 20041021
  Receipt Date: 20041015
  Transmission Date: 20050328
  Serious: Yes (Life-Threatening, Hospitalization)
  Sender: FDA-Public Use
  Company Number: CH-BRISTOL-MYERS SQUIBB COMPANY-12738456

PATIENT
  Age: 62 Year
  Sex: Male

DRUGS (2)
  1. CETUXIMAB [Suspect]
     Indication: COLORECTAL CANCER METASTATIC
     Dosage: MOST RECENT INFUSION: 01-OCT-04. PT HAD REC'D 3 INFUSIONS TO DATE. DOSE DELAYED/THEN REDUCED
     Route: 041
     Dates: start: 20040920
  2. IRINOTECAN [Suspect]
     Indication: COLORECTAL CANCER METASTATIC
     Dosage: MOST RECENT INFUSION: 01-OCT-04. PT HAD REC'D 3 INFUSIONS TO DATE.  DOSE DELAYED/THEN REDUCED
     Route: 042
     Dates: start: 20040920

REACTIONS (3)
  - DEHYDRATION [None]
  - DIARRHOEA [None]
  - GASTRITIS [None]
